FAERS Safety Report 23907353 (Version 1)
Quarter: 2024Q2

REPORT INFORMATION
  Report Type: Spontaneous
  Country: US (occurrence: US)
  Receive Date: 20240528
  Receipt Date: 20240528
  Transmission Date: 20240716
  Serious: No
  Sender: FDA-Public Use
  Company Number: US-AJANTA-2024AJA00093

PATIENT

DRUGS (3)
  1. CLONIDINE HYDROCHLORIDE [Suspect]
     Active Substance: CLONIDINE HYDROCHLORIDE
     Indication: Hypertension
  2. LISINOPRIL [Suspect]
     Active Substance: LISINOPRIL
     Indication: Hypertension
  3. METOPROLOL [Suspect]
     Active Substance: METOPROLOL
     Indication: Hypertension

REACTIONS (2)
  - Drug ineffective for unapproved indication [Unknown]
  - Hypertension [Not Recovered/Not Resolved]
